FAERS Safety Report 22356785 (Version 2)
Quarter: 2024Q4

REPORT INFORMATION
  Report Type: Report from Study
  Country: US (occurrence: US)
  Receive Date: 20230523
  Receipt Date: 20241202
  Transmission Date: 20250114
  Serious: Yes (Other)
  Sender: NOVARTIS
  Company Number: US-002147023-NVSC2023US115100

PATIENT
  Age: 57 Year
  Sex: Female
  Weight: 108.84 kg

DRUGS (3)
  1. KESIMPTA [Suspect]
     Active Substance: OFATUMUMAB
     Indication: Multiple sclerosis
     Dosage: 20/0.4 ML, QMO
     Route: 058
     Dates: start: 20221121
  2. KESIMPTA [Suspect]
     Active Substance: OFATUMUMAB
     Dosage: UNK UNK, QMO
     Route: 065
     Dates: start: 20221211
  3. KESIMPTA [Suspect]
     Active Substance: OFATUMUMAB
     Dosage: 20/0.4 ML, QMO
     Route: 058
     Dates: end: 20240801

REACTIONS (3)
  - Acute lymphocytic leukaemia [Not Recovered/Not Resolved]
  - B-cell type acute leukaemia [Not Recovered/Not Resolved]
  - Therapeutic response unexpected [Unknown]

NARRATIVE: CASE EVENT DATE: 20240901
